FAERS Safety Report 12182968 (Version 1)
Quarter: 2016Q1

REPORT INFORMATION
  Report Type: Spontaneous
  Country: US (occurrence: US)
  Receive Date: 20160316
  Receipt Date: 20160316
  Transmission Date: 20160526
  Serious: Yes (Other)
  Sender: FDA-Public Use
  Company Number: US-CELGENE-USA-2016030859

PATIENT
  Age: 67 Year
  Sex: Female
  Weight: 49.03 kg

DRUGS (2)
  1. OTEZLA [Suspect]
     Active Substance: APREMILAST
     Route: 048
     Dates: start: 20160215
  2. OTEZLA [Suspect]
     Active Substance: APREMILAST
     Indication: PSORIATIC ARTHROPATHY
     Route: 048
     Dates: start: 2015, end: 2015

REACTIONS (3)
  - Diarrhoea [Not Recovered/Not Resolved]
  - Drug intolerance [Not Recovered/Not Resolved]
  - Secretion discharge [Not Recovered/Not Resolved]

NARRATIVE: CASE EVENT DATE: 20160215
